FAERS Safety Report 20391672 (Version 1)
Quarter: 2022Q1

REPORT INFORMATION
  Report Type: Spontaneous
  Country: US (occurrence: US)
  Receive Date: 20220128
  Receipt Date: 20220128
  Transmission Date: 20220424
  Serious: No
  Sender: FDA-Public Use
  Company Number: US-MMM-3O17EN8Q

PATIENT
  Age: 67 Year
  Sex: Female

DRUGS (1)
  1. FLOVENT HFA [Suspect]
     Active Substance: FLUTICASONE PROPIONATE
     Indication: COVID-19
     Dosage: 110 UG, QD
     Dates: start: 202011

REACTIONS (1)
  - Product use in unapproved indication [Unknown]

NARRATIVE: CASE EVENT DATE: 20201101
